FAERS Safety Report 19048734 (Version 1)
Quarter: 2021Q1

REPORT INFORMATION
  Report Type: Report from Study
  Country: BR (occurrence: BR)
  Receive Date: 20210323
  Receipt Date: 20210323
  Transmission Date: 20210420
  Serious: Yes (Other)
  Sender: FDA-Public Use
  Company Number: BR-TAKEDA-2020TUS004309

PATIENT
  Age: 40 Year
  Sex: Female

DRUGS (5)
  1. MESACOL MMX [Suspect]
     Active Substance: MESALAMINE
     Indication: PRODUCT USED FOR UNKNOWN INDICATION
     Dosage: UNK
     Route: 065
     Dates: start: 201908
  2. VEDOLIZUMAB [Suspect]
     Active Substance: VEDOLIZUMAB
     Indication: COLITIS ULCERATIVE
     Dosage: 300 MILLIGRAM
     Route: 042
     Dates: start: 20200107
  3. VEDOLIZUMAB [Suspect]
     Active Substance: VEDOLIZUMAB
     Dosage: 300 MILLIGRAM, Q4WEEKS
     Route: 042
  4. CERAZETTE                          /00754001/ [Concomitant]
     Active Substance: DESOGESTREL
     Indication: CONTRACEPTION
     Dosage: UNK
     Dates: start: 201902
  5. CORTISONE [Concomitant]
     Active Substance: CORTISONE
     Dosage: 20 MILLIGRAM
     Dates: start: 201902, end: 2020

REACTIONS (22)
  - Ocular hyperaemia [Unknown]
  - Intestinal ulcer [Recovering/Resolving]
  - Pain [Not Recovered/Not Resolved]
  - Pain in extremity [Not Recovered/Not Resolved]
  - Diarrhoea [Recovering/Resolving]
  - Abdominal pain [Unknown]
  - Onychoclasis [Unknown]
  - Erythema [Unknown]
  - Arthritis [Not Recovered/Not Resolved]
  - Oedema peripheral [Recovering/Resolving]
  - Arthralgia [Not Recovered/Not Resolved]
  - Hypersomnia [Unknown]
  - Gait inability [Unknown]
  - Buttock injury [Unknown]
  - Decreased immune responsiveness [Unknown]
  - Eye irritation [Unknown]
  - Blister [Unknown]
  - Dry skin [Unknown]
  - Hunger [Unknown]
  - Fatigue [Unknown]
  - Abnormal sensation in eye [Unknown]
  - Flatulence [Unknown]

NARRATIVE: CASE EVENT DATE: 202001
